FAERS Safety Report 17765867 (Version 1)
Quarter: 2020Q2

REPORT INFORMATION
  Report Type: Report from Study
  Country: US (occurrence: US)
  Receive Date: 20200511
  Receipt Date: 20200511
  Transmission Date: 20200714
  Serious: Yes (Hospitalization, Other)
  Sender: FDA-Public Use
  Company Number: US-ASTRAZENECA-2020SE60369

PATIENT
  Sex: Female
  Weight: 63.5 kg

DRUGS (20)
  1. PROBIOTIC [Concomitant]
     Active Substance: PROBIOTICS NOS
  2. HUMALOG [Concomitant]
     Active Substance: INSULIN LISPRO
  3. MUCINEX [Concomitant]
     Active Substance: GUAIFENESIN
  4. OMEPRAZOLE. [Concomitant]
     Active Substance: OMEPRAZOLE
  5. TRESIBA [Concomitant]
     Active Substance: INSULIN DEGLUDEC
  6. AZITHROMYCIN ANHYDROUS. [Concomitant]
     Active Substance: AZITHROMYCIN ANHYDROUS
  7. CALCIUM [Concomitant]
     Active Substance: CALCIUM
  8. FASENRA [Suspect]
     Active Substance: BENRALIZUMAB
     Indication: EOSINOPHILIA
     Route: 058
     Dates: start: 20200328
  9. PREDNISONE. [Concomitant]
     Active Substance: PREDNISONE
  10. VORICONAZOLE. [Concomitant]
     Active Substance: VORICONAZOLE
  11. OXYGEN. [Concomitant]
     Active Substance: OXYGEN
  12. METOPROLOL SUCCINATE. [Concomitant]
     Active Substance: METOPROLOL SUCCINATE
  13. ZESTORETIC [Concomitant]
     Active Substance: HYDROCHLOROTHIAZIDE\LISINOPRIL
  14. INCRUSE ELLIPTA [Concomitant]
     Active Substance: UMECLIDINIUM BROMIDE
  15. PROBIOTIC [Concomitant]
     Active Substance: PROBIOTICS NOS
  16. ZOLOFT [Concomitant]
     Active Substance: SERTRALINE HYDROCHLORIDE
  17. ADVAIR HFA [Concomitant]
     Active Substance: FLUTICASONE PROPIONATE\SALMETEROL XINAFOATE
  18. ROSUVASTATIN CALCIUM. [Concomitant]
     Active Substance: ROSUVASTATIN CALCIUM
  19. FOSAMAX [Concomitant]
     Active Substance: ALENDRONATE SODIUM
  20. VENTOLIN HFA [Concomitant]
     Active Substance: ALBUTEROL SULFATE

REACTIONS (4)
  - Sinusitis [Recovering/Resolving]
  - Pyrexia [Recovering/Resolving]
  - Dyspnoea [Recovering/Resolving]
  - SARS-CoV-2 test negative [Unknown]
